FAERS Safety Report 4898150-9 (Version None)
Quarter: 2006Q1

REPORT INFORMATION
  Report Type: 
  Country: None (occurrence: None)
  Receive Date: 20060106
  Receipt Date: 20050913
  Transmission Date: 20060701
  Serious: Yes (Other)
  Sender: FDA-Public Use
  Company Number: HQWYE487315SEP05

PATIENT
  Age: 74 Year
  Sex: Female
  Weight: 61.29 kg

DRUGS (4)
  1. PRIMATENE MIST [Suspect]
     Indication: DYSPNOEA
     Dosage: 1 INHALATION TWICE, INHALATION
     Route: 055
     Dates: start: 20050906, end: 20050906
  2. NEURONTIN [Concomitant]
  3. PROTONIX [Concomitant]
  4. TRAZODONE (TRAZODONE) [Concomitant]

REACTIONS (1)
  - PHARYNGOLARYNGEAL PAIN [None]
